FAERS Safety Report 7007574-5 (Version None)
Quarter: 2010Q3

REPORT INFORMATION
  Report Type: 
  Country: None (occurrence: None)
  Receive Date: 20100917
  Receipt Date: 20100907
  Transmission Date: 20110219
  Serious: Yes (Hospitalization)
  Sender: FDA-Public Use
  Company Number: 2010086074

PATIENT
  Age: 62 Year
  Sex: Female
  Weight: 73 kg

DRUGS (14)
  1. FRAGMIN [Suspect]
     Indication: THROMBOSIS PROPHYLAXIS
     Dosage: 10000 IU, IV DRIP
     Route: 041
     Dates: start: 20100701, end: 20100710
  2. AMINOPHYLLIN [Suspect]
     Dosage: 2000 ML, IV DRIP
     Route: 041
  3. HUMULIN (INNSULIN HUMAN, INSULIN ISOPHANE, HUMAN BIOSYNTHETIC) [Concomitant]
  4. DEXTROSE 5% [Concomitant]
  5. ROCEPHIN [Concomitant]
  6. OMEPRAZOLE [Concomitant]
  7. PROPOFOL (PROPOFOL) INJECTION [Concomitant]
  8. MINOCYCLINE (MINOCYCLINE) INJECTION [Concomitant]
  9. PREDNISOLONE [Concomitant]
  10. ELASPOL (SIVELESTAT) INJECTION [Concomitant]
  11. DOPAMINE HYDROCHLORIDE [Concomitant]
  12. DORMICUM/AUS/(NITRAZEPAM) INJECTION [Concomitant]
  13. SOLITA (ELECTROLYTES NOS) [Concomitant]
  14. FULCALIQ (AMINO ACIDS NOSM ELECTROLYTES NOS, GLUCOSE, VITAMINS NOS) [Concomitant]

REACTIONS (5)
  - ANXIETY [None]
  - FIBRIN D DIMER INCREASED [None]
  - INJECTION SITE EXTRAVASATION [None]
  - INJECTION SITE SWELLING [None]
  - INJECTION SITE VESICLES [None]
